FAERS Safety Report 13920666 (Version 1)
Quarter: 2017Q3

REPORT INFORMATION
  Report Type: Spontaneous
  Country: DE (occurrence: DE)
  Receive Date: 20170830
  Receipt Date: 20170830
  Transmission Date: 20171127
  Serious: Yes (Other)
  Sender: FDA-Public Use
  Company Number: PHHY2017DE126606

PATIENT
  Sex: Female

DRUGS (1)
  1. DIOVAN [Suspect]
     Active Substance: VALSARTAN
     Indication: PRODUCT USED FOR UNKNOWN INDICATION
     Dosage: 80 MG, UNK
     Route: 065
     Dates: end: 2015

REACTIONS (6)
  - Heart rate irregular [Unknown]
  - Renal failure [Unknown]
  - Breast cancer [Unknown]
  - Asthenia [Unknown]
  - Cardiac failure [Unknown]
  - Arrhythmia [Unknown]

NARRATIVE: CASE EVENT DATE: 2013
